FAERS Safety Report 18630254 (Version 1)
Quarter: 2020Q4

REPORT INFORMATION
  Report Type: Spontaneous
  Country: CA (occurrence: CA)
  Receive Date: 20201218
  Receipt Date: 20201218
  Transmission Date: 20210114
  Serious: Yes (Hospitalization)
  Sender: FDA-Public Use
  Company Number: CA-LUPIN PHARMACEUTICALS INC.-2020-05237

PATIENT
  Age: 48 Year
  Sex: Male

DRUGS (16)
  1. KETAMINE [Concomitant]
     Active Substance: KETAMINE
     Indication: ANALGESIC THERAPY
     Dosage: PATIENT CONTROLLED ANALGESIA SOLUTION OF HYDROMORPHONE 0.5 MG/ML PLUS KETAMINE 0.2 MG/ML (WITH SETTI
     Route: 065
  2. BUPIVACAINE. [Concomitant]
     Active Substance: BUPIVACAINE
     Indication: ANALGESIC THERAPY
     Dosage: THORACIC EPIDURAL INFUSION; INFUSION RATE: 14 ML/HOUR   UNK
     Route: 008
  3. EPINEPHRINE. [Concomitant]
     Active Substance: EPINEPHRINE
     Indication: ANALGESIC THERAPY
     Dosage: 1: 200 K; THORACIC EPIDURAL INFUSION; INFUSION RATE: 16 ML/HOUR (ANALGESIA)
     Route: 008
  4. EPINEPHRINE. [Concomitant]
     Active Substance: EPINEPHRINE
     Dosage: 5 MILLILITER (BOLUS, FOLLOWING WHICH BASAL INFUSION RATE WAS INCREASED TO 20 ML/HOUR (ANALGESIA))
     Route: 008
  5. HYDROMORPHONE [Suspect]
     Active Substance: HYDROMORPHONE
     Dosage: 5 MILLILITER (BOLUS, FOLLOWING WHICH BASAL INFUSION RATE WAS INCREASED TO 20 ML/HOUR (ANALGESIA)   )
     Route: 008
  6. MORPHINE [Suspect]
     Active Substance: MORPHINE
     Indication: ANALGESIC THERAPY
     Dosage: 5 MILLIGRAM,BOLUS
     Route: 008
  7. HYDROMORPHONE [Suspect]
     Active Substance: HYDROMORPHONE
     Dosage: 10 MCG/ML; THORACIC EPIDURAL INFUSION; INFUSION RATE: 16 ML/HOUR (ANALGESIA)
     Route: 008
  8. DEXMEDETOMIDINE. [Suspect]
     Active Substance: DEXMEDETOMIDINE
     Indication: ANALGESIC THERAPY
     Dosage: UNK, (1 MCG/ML)
     Route: 008
  9. KETAMINE [Concomitant]
     Active Substance: KETAMINE
     Indication: MAINTENANCE OF ANAESTHESIA
     Dosage: 0.3 MILLIGRAM/KILOGRAM (MAINTENANCE OF ANAESTHESIA)
     Route: 065
  10. EPINEPHRINE. [Concomitant]
     Active Substance: EPINEPHRINE
     Indication: MAINTENANCE OF ANAESTHESIA
     Dosage: 1: 200 K; THORACIC EPIDURAL INFUSION; INFUSION RATE: 14 ML/HOUR
     Route: 008
  11. HYDROMORPHONE [Suspect]
     Active Substance: HYDROMORPHONE
     Indication: ANALGESIC THERAPY
     Dosage: UNK, (THORACIC EPIDURAL INFUSION; INFUSION RATE: 14 ML/HOUR)
     Route: 008
  12. BUPIVACAINE. [Concomitant]
     Active Substance: BUPIVACAINE
     Dosage: THORACIC EPIDURAL INFUSION (0.2 %)
     Route: 008
  13. HYDROMORPHONE [Suspect]
     Active Substance: HYDROMORPHONE
     Indication: MAINTENANCE OF ANAESTHESIA
     Dosage: UNK, (PATIENT CONTROLLED ANALGESIA SOLUTION OF HYDROMORPHONE 0.5 MG/ML PLUS KETAMINE 0.2 MG/ML (WITH
     Route: 042
  14. HYDROMORPHONE [Suspect]
     Active Substance: HYDROMORPHONE
     Dosage: 0.5 MILLIGRAM (BOLUS; A TOTAL DOSE OF 4.5MG OVER 5.5 HOURS (MAINTENANCE OF ANAESTHESIA)   )
     Route: 008
  15. BUPIVACAINE. [Concomitant]
     Active Substance: BUPIVACAINE
     Indication: MAINTENANCE OF ANAESTHESIA
     Dosage: THORACIC EPIDURAL INFUSION; INFUSION RATE: 16 ML/HOUR (ANALGESIA)
     Route: 008
  16. BUPIVACAINE. [Concomitant]
     Active Substance: BUPIVACAINE
     Dosage: 5 MILLILITER,BOLUS, FOLLOWING WHICH BASAL INFUSION RATE WAS INCREASED TO 20 ML/HOUR (ANALGESIA)
     Route: 008

REACTIONS (1)
  - Hyperaesthesia [Recovered/Resolved]
